FAERS Safety Report 20684424 (Version 1)
Quarter: 2022Q2

REPORT INFORMATION
  Report Type: Spontaneous
  Country: US (occurrence: US)
  Receive Date: 20220407
  Receipt Date: 20220407
  Transmission Date: 20220721
  Serious: No
  Sender: FDA-Public Use
  Company Number: US-PFIZER INC-202101214202

PATIENT
  Age: 57 Year
  Sex: Female

DRUGS (8)
  1. IBRANCE [Suspect]
     Active Substance: PALBOCICLIB
     Indication: Breast cancer female
     Dosage: 100 MG, CYCLIC (DAILYX21 DAYS)
     Route: 048
     Dates: start: 20160210
  2. CALCIUM [Concomitant]
     Active Substance: CALCIUM
  3. CURCUMIN [Concomitant]
     Active Substance: CURCUMIN
  4. FISH OIL [Concomitant]
     Active Substance: FISH OIL
  5. LETROZOLE [Concomitant]
     Active Substance: LETROZOLE
  6. TYLENOL [Concomitant]
     Active Substance: ACETAMINOPHEN
  7. CHOLECALCIFEROL [Concomitant]
     Active Substance: CHOLECALCIFEROL
  8. VITAMIN B COMPLEX [Concomitant]
     Active Substance: CYANOCOBALAMIN\DEXPANTHENOL\NIACINAMIDE\PYRIDOXINE HYDROCHLORIDE\RIBOFLAVIN 5^-PHOSPHATE SODIUM\THIA

REACTIONS (1)
  - Fatigue [Unknown]
